FAERS Safety Report 11734190 (Version 2)
Quarter: 2015Q4

REPORT INFORMATION
  Report Type: Spontaneous
  Country: HR (occurrence: HR)
  Receive Date: 20151113
  Receipt Date: 20151204
  Transmission Date: 20160304
  Serious: Yes (Other)
  Sender: FDA-Public Use
  Company Number: HR-ACTAVIS-2015-24354

PATIENT
  Age: 51 Year
  Sex: Female
  Weight: 85 kg

DRUGS (3)
  1. CALCIUM FOLINATE [Concomitant]
     Active Substance: LEUCOVORIN CALCIUM
     Indication: RECTAL CANCER
     Dosage: 395 MG, DAILY
     Route: 042
     Dates: start: 20151015, end: 20151016
  2. SINOXAL [Suspect]
     Active Substance: OXALIPLATIN
     Indication: RECTAL CANCER
     Dosage: 165 MG, SINGLE
     Route: 042
     Dates: start: 20151015, end: 20151015
  3. FLUOROURACIL PLIVA [Concomitant]
     Active Substance: FLUOROURACIL
     Indication: RECTAL CANCER
     Dosage: UNK
     Route: 048
     Dates: start: 20151015, end: 20151016

REACTIONS (4)
  - Neuropathy peripheral [Recovering/Resolving]
  - Limb discomfort [Recovering/Resolving]
  - Myalgia [Not Recovered/Not Resolved]
  - Hypoaesthesia [Recovering/Resolving]

NARRATIVE: CASE EVENT DATE: 20151015
